FAERS Safety Report 5316131-8 (Version None)
Quarter: 2007Q2

REPORT INFORMATION
  Report Type: 
  Country: None (occurrence: None)
  Receive Date: 20070503
  Receipt Date: 20070419
  Transmission Date: 20071010
  Serious: Yes (Hospitalization)
  Sender: FDA-Public Use
  Company Number: FR-ELI_LILLY_AND_COMPANY-FR200704004696

PATIENT
  Age: 90 Year
  Sex: Female

DRUGS (7)
  1. PROZAC [Suspect]
     Dosage: UNK, UNKNOWN
     Route: 048
     Dates: end: 20061205
  2. ARICEPT [Interacting]
     Indication: DEMENTIA ALZHEIMER'S TYPE
     Dosage: UNK, UNKNOWN
     Route: 048
     Dates: end: 20061205
  3. KARDEGIC /FRA/ [Concomitant]
     Dosage: UNK, UNKNOWN
     Route: 065
  4. TAREG [Concomitant]
     Dosage: UNK, UNKNOWN
     Route: 065
  5. AMLOR [Concomitant]
     Dosage: UNK, UNKNOWN
     Route: 065
  6. MEMANTINE HCL [Concomitant]
     Dosage: UNK, UNKNOWN
     Route: 065
  7. DIPIPERON [Concomitant]
     Dosage: UNK, UNKNOWN
     Route: 065

REACTIONS (2)
  - BRADYCARDIA [None]
  - DRUG INTERACTION [None]
